FAERS Safety Report 10333558 (Version 1)
Quarter: 2014Q3

REPORT INFORMATION
  Report Type: Report from Study
  Country: GB (occurrence: GB)
  Receive Date: 20140723
  Receipt Date: 20140723
  Transmission Date: 20150326
  Serious: Yes (Death)
  Sender: FDA-Public Use
  Company Number: GB-ROCHE-1438702

PATIENT
  Age: 64 Year
  Sex: Male

DRUGS (12)
  1. DEXTROSE, SODIUM CHLORIDE, AND POTASSIUM CHLORIDE [Concomitant]
     Active Substance: DEXTROSE\POTASSIUM CHLORIDE\SODIUM CHLORIDE
     Indication: COLON CANCER
     Route: 042
     Dates: end: 20120509
  2. DOMPERIDONE [Concomitant]
     Active Substance: DOMPERIDONE
     Indication: COLON CANCER
     Route: 048
     Dates: end: 20120509
  3. FLUOROURACIL. [Concomitant]
     Active Substance: FLUOROURACIL
     Route: 040
     Dates: end: 20120509
  4. FOLINIC ACID [Concomitant]
     Active Substance: LEUCOVORIN
     Indication: COLON CANCER
     Route: 040
     Dates: end: 20120509
  5. FLUOROURACIL. [Concomitant]
     Active Substance: FLUOROURACIL
     Indication: COLON CANCER
     Route: 050
     Dates: end: 20120509
  6. DEXAMETHASONE. [Concomitant]
     Active Substance: DEXAMETHASONE
     Indication: COLON CANCER
     Route: 048
     Dates: end: 20120509
  7. LOPERAMIDE [Concomitant]
     Active Substance: LOPERAMIDE
     Indication: COLON CANCER
     Route: 048
     Dates: end: 20120509
  8. ONDANSETRON [Concomitant]
     Active Substance: ONDANSETRON
     Indication: COLON CANCER
     Route: 048
     Dates: end: 20120509
  9. IRINOTECAN [Concomitant]
     Active Substance: IRINOTECAN
     Indication: COLON CANCER
     Route: 042
     Dates: end: 20120509
  10. ATROPINE SULPHATE [Concomitant]
     Indication: COLON CANCER
     Route: 058
     Dates: end: 20120509
  11. BEVACIZUMAB [Suspect]
     Active Substance: BEVACIZUMAB
     Indication: COLON CANCER
     Route: 042
     Dates: end: 20120509
  12. ONDANSETRON [Concomitant]
     Active Substance: ONDANSETRON
     Route: 048
     Dates: end: 20120509

REACTIONS (1)
  - Death [Fatal]
